FAERS Safety Report 15231790 (Version 1)
Quarter: 2018Q3

REPORT INFORMATION
  Report Type: Spontaneous
  Country: FR (occurrence: FR)
  Receive Date: 20180802
  Receipt Date: 20180802
  Transmission Date: 20181010
  Serious: Yes (Disabling)
  Sender: FDA-Public Use
  Company Number: FR-NOVOPROD-464239

PATIENT
  Age: 36 Year
  Sex: Female
  Weight: 67 kg

DRUGS (8)
  1. NOVOSEVEN [Suspect]
     Active Substance: COAGULATION FACTOR VIIA RECOMBINANT HUMAN
     Dosage: UNK
     Route: 042
     Dates: end: 20170621
  2. NOVOSEVEN [Suspect]
     Active Substance: COAGULATION FACTOR VIIA RECOMBINANT HUMAN
     Indication: FACTOR V DEFICIENCY
     Dosage: RFVIIA 1 MG; TWICE PER WEEK
     Route: 042
     Dates: start: 20150827
  3. NOVOSEVEN [Suspect]
     Active Substance: COAGULATION FACTOR VIIA RECOMBINANT HUMAN
     Dosage: UNK (EVERYDAY FOR 7 DAYS)
     Route: 042
  4. NOVOSEVEN [Suspect]
     Active Substance: COAGULATION FACTOR VIIA RECOMBINANT HUMAN
     Dosage: UNK (MONDAY?2MG, WEDNESDAY?1 MG, FRIDAY?2MG))
     Route: 042
     Dates: start: 2016
  5. NOVOSEVEN [Suspect]
     Active Substance: COAGULATION FACTOR VIIA RECOMBINANT HUMAN
     Indication: GINGIVAL BLEEDING
     Dosage: THREE TIMES WITH INCREASE OF DOSE
     Route: 042
  6. NOVOSEVEN [Suspect]
     Active Substance: COAGULATION FACTOR VIIA RECOMBINANT HUMAN
     Indication: OFF LABEL USE
     Dosage: UNK (INJECTIONS AT HOME)
     Route: 042
     Dates: start: 20150901
  7. NOVOSEVEN [Suspect]
     Active Substance: COAGULATION FACTOR VIIA RECOMBINANT HUMAN
     Dosage: UNK (EVERY DAY FOR 3 DAYS)
     Route: 042
     Dates: start: 2016
  8. NOVOSEVEN [Suspect]
     Active Substance: COAGULATION FACTOR VIIA RECOMBINANT HUMAN
     Dosage: UNK (NORMAL RYTHM)
     Route: 042

REACTIONS (14)
  - Haemarthrosis [Unknown]
  - Arthralgia [Unknown]
  - Vomiting [Unknown]
  - Physical disability [Not Recovered/Not Resolved]
  - Gingival bleeding [Unknown]
  - Pain in extremity [Unknown]
  - Off label use [Unknown]
  - Head discomfort [Unknown]
  - Off label use [Unknown]
  - Neck pain [Not Recovered/Not Resolved]
  - Eyelid haematoma [Unknown]
  - Facial neuralgia [Unknown]
  - Paraesthesia [Not Recovered/Not Resolved]
  - Tooth disorder [Not Recovered/Not Resolved]

NARRATIVE: CASE EVENT DATE: 20150827
